FAERS Safety Report 9914427 (Version 2)
Quarter: 2015Q1

REPORT INFORMATION
  Report Type: Spontaneous
  Country: JP (occurrence: None)
  Receive Date: 20140218
  Receipt Date: 20150209
  Transmission Date: 20150721
  Serious: Yes (Other)
  Sender: FDA-Public Use
  Company Number: KAD201402-000204

PATIENT

DRUGS (3)
  1. PEGINTERFERON ALFA-2B [Suspect]
     Active Substance: PEGINTERFERON ALFA-2B
     Indication: CHRONIC HEPATITIS C
  2. RIBAVIRIN. [Suspect]
     Active Substance: RIBAVIRIN
     Indication: CHRONIC HEPATITIS C
  3. TELAPREVIR (TELAPREVIR) [Suspect]
     Active Substance: TELAPREVIR
     Indication: CHRONIC HEPATITIS C

REACTIONS (2)
  - Viral load increased [None]
  - Pelvic infection [None]
